FAERS Safety Report 20264038 (Version 1)
Quarter: 2021Q4

REPORT INFORMATION
  Report Type: Spontaneous
  Country: NL (occurrence: NL)
  Receive Date: 20211231
  Receipt Date: 20211231
  Transmission Date: 20220303
  Serious: Yes (Other)
  Sender: FDA-Public Use
  Company Number: None

PATIENT
  Sex: Male
  Weight: 69 kg

DRUGS (1)
  1. TADALAFIL [Suspect]
     Active Substance: TADALAFIL
     Indication: Erectile dysfunction
     Dosage: IF NECESSARY 1 TABLET.TADALAFIL TABLET FO 10MG / BRAND NAME NOT SPECIFIED,THERAPY END DATE:ASKU
     Dates: start: 20191012

REACTIONS (1)
  - Eye haemorrhage [Not Recovered/Not Resolved]
